FAERS Safety Report 4619725-8 (Version None)
Quarter: 2005Q1

REPORT INFORMATION
  Report Type: 
  Country: None (occurrence: None)
  Receive Date: 20050325
  Receipt Date: 20050316
  Transmission Date: 20050727
  Serious: Yes (Hospitalization)
  Sender: FDA-Public Use
  Company Number: GB-ABBOTT-05P-167-0294410-00

PATIENT
  Sex: Male
  Weight: 66 kg

DRUGS (15)
  1. KALETRA [Suspect]
     Indication: HIV TEST POSITIVE
     Dosage: EACH KALETRA CAPSULE CONTAINS 133.33 MG LOPINAVIR AND 33.3 MG RITONAVIR, THEREFORE THE DOSE IS 533 M
     Route: 048
     Dates: start: 20030805, end: 20050114
  2. KALETRA [Suspect]
     Dates: start: 20050125
  3. CAPRAVIRINE [Suspect]
     Indication: HIV TEST POSITIVE
     Route: 048
     Dates: start: 20040709, end: 20050114
  4. CAPRAVIRINE [Suspect]
     Dates: start: 20050125
  5. LAMIVUDINE [Suspect]
     Indication: HIV TEST POSITIVE
     Route: 048
     Dates: start: 19990610, end: 20050114
  6. LAMIVUDINE [Suspect]
     Dates: start: 20050125
  7. TENOFOVIR [Suspect]
     Indication: HIV TEST POSITIVE
     Route: 048
     Dates: start: 20030805, end: 20050114
  8. TENOFOVIR [Suspect]
     Dates: start: 20050125
  9. KALETRA [Suspect]
     Indication: HIV TEST POSITIVE
     Dates: start: 20030812, end: 20050114
  10. KALETRA [Suspect]
     Dates: start: 20050125
  11. CAPRAVIRINE/PLACEBO [Suspect]
     Indication: HIV TEST POSITIVE
     Dates: start: 20030812, end: 20050114
  12. CAPRAVIRINE/PLACEBO [Suspect]
     Dates: start: 20050125
  13. LOPERAMIDE HCL [Concomitant]
     Indication: DRUG USE FOR UNKNOWN INDICATION
     Route: 048
     Dates: start: 20030909
  14. LAMIVUDINE [Concomitant]
     Indication: DRUG USE FOR UNKNOWN INDICATION
     Route: 048
     Dates: start: 19990610
  15. VIREAD [Concomitant]
     Indication: DRUG USE FOR UNKNOWN INDICATION
     Route: 048
     Dates: start: 20030805

REACTIONS (7)
  - ANOREXIA [None]
  - BACK PAIN [None]
  - CHROMATURIA [None]
  - DIARRHOEA [None]
  - HEPATITIS VIRAL [None]
  - LETHARGY [None]
  - VOMITING [None]
